FAERS Safety Report 8380627-5 (Version None)
Quarter: 2012Q2

REPORT INFORMATION
  Report Type: 
  Country: None (occurrence: None)
  Receive Date: 20120523
  Receipt Date: 20120514
  Transmission Date: 20120825
  Serious: Yes (Death)
  Sender: FDA-Public Use
  Company Number: US-ACTELION-A-NJ2012-65800

PATIENT

DRUGS (5)
  1. COUMADIN [Concomitant]
  2. ALDACTONE [Concomitant]
  3. DIGOXIN [Concomitant]
  4. EPOPROSTENOL SODIUM [Suspect]
     Indication: PULMONARY ARTERIAL HYPERTENSION
     Dosage: 50 NG/KG, PER MIN
     Route: 041
     Dates: start: 20101105, end: 20120513
  5. OXYGEN [Concomitant]

REACTIONS (1)
  - CARDIAC FAILURE [None]
